FAERS Safety Report 4264380-2 (Version None)
Quarter: 2004Q1

REPORT INFORMATION
  Report Type: 
  Country: None (occurrence: None)
  Receive Date: 20040102
  Receipt Date: 20031224
  Transmission Date: 20041129
  Serious: Yes (Other)
  Sender: FDA-Public Use
  Company Number: APCDSS2002000706

PATIENT
  Age: 43 Year
  Sex: Male
  Weight: 49 kg

DRUGS (4)
  1. REMICADE [Suspect]
     Indication: CROHN'S DISEASE
     Dosage: 240 MG, 1 IN 1 AS NECESSARY, INJECTION ; 5 MG/KG , 1 IN 1 AS NECESSARY INJECTION
     Dates: start: 20020613, end: 20020613
  2. REMICADE [Suspect]
     Indication: CROHN'S DISEASE
     Dosage: 240 MG, 1 IN 1 AS NECESSARY, INJECTION ; 5 MG/KG , 1 IN 1 AS NECESSARY INJECTION
     Dates: start: 20020815, end: 20020815
  3. ACETYLSALICYLIC ACID SRT [Concomitant]
  4. TOTAL PARENTERAL NUTRITION (POLYVINYL ALCOHOL) [Concomitant]

REACTIONS (10)
  - BLOOD ALBUMIN DECREASED [None]
  - BLOOD GLUCOSE INCREASED [None]
  - BODY TEMPERATURE DECREASED [None]
  - HAEMOGLOBIN DECREASED [None]
  - MOUTH ULCERATION [None]
  - PYREXIA [None]
  - STOMATITIS [None]
  - THROAT IRRITATION [None]
  - WEIGHT INCREASED [None]
  - WHITE BLOOD CELL COUNT DECREASED [None]
